FAERS Safety Report 7058477-1 (Version None)
Quarter: 2010Q4

REPORT INFORMATION
  Report Type: 
  Country: None (occurrence: None)
  Receive Date: 20101022
  Receipt Date: 20101015
  Transmission Date: 20110411
  Serious: Yes (Hospitalization)
  Sender: FDA-Public Use
  Company Number: PK-US-EMD SERONO, INC.-7022362

PATIENT
  Age: 26 Year
  Sex: Female
  Weight: 52 kg

DRUGS (1)
  1. RECOMBINANT FOLLICLE STIMULATING HORMONE (RFSH) [Suspect]
     Indication: OVULATION INDUCTION
     Dosage: 8 INJECTIONS IN THIS CYCLE

REACTIONS (1)
  - ECTOPIC PREGNANCY [None]
